FAERS Safety Report 10227497 (Version 1)
Quarter: 2014Q2

REPORT INFORMATION
  Report Type: Spontaneous
  Country: IT (occurrence: IT)
  Receive Date: 20140610
  Receipt Date: 20140610
  Transmission Date: 20141212
  Serious: Yes (Death, Other)
  Sender: FDA-Public Use
  Company Number: PHHY2014IT069852

PATIENT
  Age: 58 Year
  Sex: Male

DRUGS (5)
  1. IMATINIB [Suspect]
     Indication: THYMIC CANCER METASTATIC
     Dosage: 800 MG, PER DAY
     Dates: start: 201111, end: 201201
  2. MITOMYCIN [Suspect]
     Dosage: 1 MG/M2, UNK
     Dates: start: 201106
  3. 5-FLUOROURACIL [Suspect]
     Dosage: 1000 MG/M2, UNK
     Route: 041
     Dates: start: 201106
  4. CISPLATIN [Suspect]
     Dosage: 10 MG/M2, UNK
     Dates: start: 201106
  5. SORAFENIB [Concomitant]
     Dosage: 800 MG, PER DAY
     Dates: start: 201007

REACTIONS (5)
  - Death [Fatal]
  - Thymic cancer metastatic [Unknown]
  - Malignant neoplasm progression [Unknown]
  - Weight decreased [Unknown]
  - Abdominal pain [Unknown]
